FAERS Safety Report 8983048 (Version 3)
Quarter: 2013Q3

REPORT INFORMATION
  Report Type: Spontaneous
  Country: US (occurrence: US)
  Receive Date: 20121224
  Receipt Date: 20130910
  Transmission Date: 20140515
  Serious: Yes (Disabling)
  Sender: FDA-Public Use
  Company Number: US-ASTRAZENECA-2012SE94576

PATIENT
  Age: 65 Year
  Sex: Female

DRUGS (24)
  1. NEXIUM [Suspect]
     Indication: HIATUS HERNIA
     Route: 048
     Dates: start: 2003, end: 2010
  2. NEXIUM [Suspect]
     Indication: GASTROOESOPHAGEAL REFLUX DISEASE
     Route: 048
     Dates: start: 2003, end: 2010
  3. NEXIUM [Suspect]
     Indication: HIATUS HERNIA
     Route: 048
     Dates: start: 20041004
  4. NEXIUM [Suspect]
     Indication: GASTROOESOPHAGEAL REFLUX DISEASE
     Route: 048
     Dates: start: 20041004
  5. NEXIUM [Suspect]
     Indication: HIATUS HERNIA
     Route: 048
     Dates: start: 20060510
  6. NEXIUM [Suspect]
     Indication: GASTROOESOPHAGEAL REFLUX DISEASE
     Route: 048
     Dates: start: 20060510
  7. PRILOSEC [Suspect]
     Indication: HIATUS HERNIA
     Route: 048
     Dates: start: 2010, end: 2013
  8. PRILOSEC [Suspect]
     Indication: GASTROOESOPHAGEAL REFLUX DISEASE
     Route: 048
     Dates: start: 2010, end: 2013
  9. PRILOSEC [Suspect]
     Indication: HIATUS HERNIA
     Route: 048
     Dates: start: 20120220
  10. PRILOSEC [Suspect]
     Indication: GASTROOESOPHAGEAL REFLUX DISEASE
     Route: 048
     Dates: start: 20120220
  11. SIMVASTATIN [Concomitant]
     Indication: CONGENITAL ARTERIAL MALFORMATION
     Dates: start: 20100817
  12. WELLBUTRIN XL [Concomitant]
     Dates: start: 20100817
  13. TRAZADONE [Concomitant]
     Indication: SLEEP DISORDER
     Dates: start: 20100817
  14. LEVOTHYROXINE [Concomitant]
     Indication: THYROID DISORDER
     Dates: start: 20100817
  15. ASA/ ASPIRIN [Concomitant]
     Dates: start: 20100817
  16. CALTRATE D [Concomitant]
     Dates: start: 20100817
  17. CALCIUM [Concomitant]
  18. OMEGA 3 [Concomitant]
  19. VENLAFAXINE [Concomitant]
     Indication: DEPRESSION
  20. MULTIVITAMINS [Concomitant]
  21. ALLEGRA [Concomitant]
     Dates: start: 20041004
  22. EVISTA [Concomitant]
  23. PRISTIQ [Concomitant]
  24. PRAVACHOL [Concomitant]
     Dates: start: 20041004

REACTIONS (15)
  - Activities of daily living impaired [Unknown]
  - Osteoporosis [Unknown]
  - Bone disorder [Unknown]
  - Hyperlipidaemia [Unknown]
  - Gastrooesophageal reflux disease [Unknown]
  - Hypothyroidism [Unknown]
  - Atrophic vulvovaginitis [Unknown]
  - Rib fracture [Unknown]
  - Osteopenia [Unknown]
  - Bone loss [Unknown]
  - Arthropathy [Unknown]
  - Arthritis [Unknown]
  - Body height decreased [Unknown]
  - Osteoarthritis [Unknown]
  - Depression [Unknown]
